FAERS Safety Report 7581329-5 (Version None)
Quarter: 2011Q2

REPORT INFORMATION
  Report Type: 
  Country: None (occurrence: None)
  Receive Date: 20110629
  Receipt Date: 20110624
  Transmission Date: 20111010
  Serious: Yes (Death, Other)
  Sender: FDA-Public Use
  Company Number: GR-PFIZER INC-2011140943

PATIENT
  Age: 50 Year
  Sex: Male

DRUGS (2)
  1. VIBRAMYCIN [Suspect]
     Indication: ENDOCARDITIS Q FEVER
     Route: 048
  2. PLAQUENIL [Suspect]
     Indication: ENDOCARDITIS Q FEVER

REACTIONS (3)
  - MITRAL VALVE INCOMPETENCE [None]
  - CARDIAC FAILURE [None]
  - AORTIC VALVE INCOMPETENCE [None]
